FAERS Safety Report 8470727-3 (Version None)
Quarter: 2012Q2

REPORT INFORMATION
  Report Type: 
  Country: None (occurrence: None)
  Receive Date: 20120627
  Receipt Date: 20120625
  Transmission Date: 20120825
  Serious: Yes (Disabling)
  Sender: FDA-Public Use
  Company Number: PHEH2012US011075

PATIENT
  Sex: Female
  Weight: 83.9 kg

DRUGS (4)
  1. CYMBALTA [Concomitant]
     Indication: DEPRESSION
     Dosage: 1 DF, DAILY
     Route: 048
  2. SEASONALE [Concomitant]
     Indication: CONTRACEPTION
     Dosage: 1 DF, DAILY
     Route: 048
  3. GILENYA [Suspect]
     Indication: MULTIPLE SCLEROSIS
     Dosage: 0.5 MG, QD
     Route: 048
     Dates: start: 20111201, end: 20120501
  4. ZYRTEC [Concomitant]
     Indication: HYPERSENSITIVITY
     Dosage: 1 DF, DAILY
     Route: 048

REACTIONS (3)
  - FATIGUE [None]
  - CHEST DISCOMFORT [None]
  - BLOOD PRESSURE INCREASED [None]
